FAERS Safety Report 7604563-4 (Version None)
Quarter: 2011Q3

REPORT INFORMATION
  Report Type: 
  Country: None (occurrence: None)
  Receive Date: 20110712
  Receipt Date: 20110630
  Transmission Date: 20111222
  Serious: Yes (Hospitalization)
  Sender: FDA-Public Use
  Company Number: IL-ELI_LILLY_AND_COMPANY-IL201011001618

PATIENT
  Age: 30 Year
  Sex: Female

DRUGS (2)
  1. FORTEO [Suspect]
     Dosage: UNK, UNK
     Route: 058
     Dates: start: 20100501
  2. FORTEO [Suspect]
     Indication: HYPOPARATHYROIDISM
     Dosage: UNK, UNKNOWN
     Route: 058

REACTIONS (5)
  - MATERNAL EXPOSURE DURING PREGNANCY [None]
  - OFF LABEL USE [None]
  - MEDICATION ERROR [None]
  - VASOCONSTRICTION [None]
  - HYPERCALCAEMIA [None]
